FAERS Safety Report 10359806 (Version 2)
Quarter: 2014Q3

REPORT INFORMATION
  Report Type: Spontaneous
  Country: TH (occurrence: TH)
  Receive Date: 20140804
  Receipt Date: 20140804
  Transmission Date: 20150326
  Serious: Yes (Other)
  Sender: FDA-Public Use
  Company Number: TH-NOVOPROD-414912

PATIENT
  Age: 34 Year
  Sex: Female
  Weight: 84 kg

DRUGS (11)
  1. NOVORAPID [Suspect]
     Active Substance: INSULIN ASPART
     Dosage: 60 U, QD ( 20-20-20 U (BEFORE BREAKFAST LUNCH DINNER))
     Route: 058
     Dates: start: 20140620
  2. FOLIC ACID. [Concomitant]
     Active Substance: FOLIC ACID
     Indication: PRODUCT USED FOR UNKNOWN INDICATION
     Dosage: 5 MG, QD (1X1 PC MORNING)
     Route: 048
     Dates: start: 20140523
  3. NOVORAPID [Suspect]
     Active Substance: INSULIN ASPART
     Indication: DIABETES MELLITUS
     Dosage: 48 U, QD ( 16-16-16 U, BEFORE BREAKFAST, LUNCH AND DINNER)
     Route: 058
     Dates: start: 20140530
  4. ISOPHANE INSULIN [Suspect]
     Active Substance: INSULIN NOS
     Dosage: 36 U, QD( 18 U BEFORE BREAKFAST 18 U BEFORE BED)
     Route: 058
     Dates: start: 20140704
  5. DIMENHYDRINATE. [Concomitant]
     Active Substance: DIMENHYDRINATE
     Dosage: 150 MG, QD (50 MG, 1X3) PC
     Route: 048
     Dates: start: 20140523
  6. FERROUS FUMARATE [Concomitant]
     Active Substance: FERROUS FUMARATE
     Indication: PRODUCT USED FOR UNKNOWN INDICATION
     Dosage: 200 MG, QD (1X1 PC MORNING)
     Route: 048
     Dates: start: 20140523
  7. ISOPHANE INSULIN [Suspect]
     Active Substance: INSULIN NOS
     Dosage: 18 U, QD (18U BEFORE BED)
     Route: 058
     Dates: start: 20140620
  8. METHYLDOPA. [Concomitant]
     Active Substance: METHYLDOPA
     Indication: PRODUCT USED FOR UNKNOWN INDICATION
     Dosage: 375 MG, QD (125 MG, 1X3)
     Route: 048
     Dates: start: 20140523
  9. NOVORAPID [Suspect]
     Active Substance: INSULIN ASPART
     Dosage: 52 U, QD ( 18-18-16 U)
     Route: 058
     Dates: start: 20140606
  10. ISOPHANE INSULIN [Suspect]
     Active Substance: INSULIN NOS
     Indication: PRODUCT USED FOR UNKNOWN INDICATION
     Dosage: 20 U, QD (10 U BEFORE BREAKFAST 10 U BEFORE BED)
     Route: 058
     Dates: start: 20140523
  11. ACTRAPID [Suspect]
     Active Substance: INSULIN HUMAN
     Indication: PRODUCT USED FOR UNKNOWN INDICATION
     Dosage: 24 U, QD (8-8-8 U BEFORE BREAKFAST LUNCH DINNER)
     Route: 058
     Dates: start: 20140523, end: 20140530

REACTIONS (3)
  - Injection site rash [Unknown]
  - Exposure during pregnancy [Recovered/Resolved]
  - Abortion complete [Recovered/Resolved]

NARRATIVE: CASE EVENT DATE: 20140530
